FAERS Safety Report 6328613-0 (Version None)
Quarter: 2009Q3

REPORT INFORMATION
  Report Type: 
  Country: None (occurrence: None)
  Receive Date: 20090807
  Receipt Date: 20090807
  Transmission Date: 20100115
  Serious: No
  Sender: FDA-Public Use
  Company Number: None

PATIENT

DRUGS (1)
  1. HEPARIN 1000 UNITS/ML -LOT 405559- APP -ABRAXIS- [Suspect]
     Indication: THERAPEUTIC PROCEDURE

REACTIONS (1)
  - PRODUCT QUALITY ISSUE [None]
